FAERS Safety Report 4575565-X (Version None)
Quarter: 2005Q1

REPORT INFORMATION
  Report Type: 
  Country: None (occurrence: None)
  Receive Date: 20050209
  Receipt Date: 20050129
  Transmission Date: 20050727
  Serious: Yes (Disabling)
  Sender: FDA-Public Use
  Company Number: GB-JNJFOC-20050200172

PATIENT
  Age: 62 Year
  Sex: Female
  Weight: 87.5 kg

DRUGS (8)
  1. TOPIRAMATE [Suspect]
     Route: 049
  2. TOPIRAMATE [Suspect]
     Route: 049
  3. TOPIRAMATE [Suspect]
     Indication: HEADACHE
     Route: 049
  4. ATENOLOL [Concomitant]
     Route: 049
  5. RABEPRAZOLE SODIUM [Concomitant]
     Indication: REFLUX OESOPHAGITIS
     Route: 049
  6. ZOLMITRIPTAN [Concomitant]
     Indication: HEADACHE
     Route: 045
  7. EPILIM [Concomitant]
     Indication: HEADACHE
     Route: 049
  8. TEMAZEPAM [Concomitant]
     Indication: INSOMNIA
     Dosage: 10MG PRN
     Route: 049

REACTIONS (8)
  - CONDITION AGGRAVATED [None]
  - DECREASED APPETITE [None]
  - FEELING ABNORMAL [None]
  - HEADACHE [None]
  - MEMORY IMPAIRMENT [None]
  - PARAESTHESIA [None]
  - RESTLESSNESS [None]
  - SLEEP DISORDER [None]
